FAERS Safety Report 24531032 (Version 6)
Quarter: 2025Q3

REPORT INFORMATION
  Report Type: Report from Study
  Country: CA (occurrence: CA)
  Receive Date: 20241022
  Receipt Date: 20250918
  Transmission Date: 20251021
  Serious: Yes (Other)
  Sender: TAKEDA
  Company Number: CA-TAKEDA-2024TUS061982

PATIENT
  Sex: Male

DRUGS (15)
  1. VEDOLIZUMAB [Suspect]
     Active Substance: VEDOLIZUMAB
     Indication: Colitis ulcerative
  2. VEDOLIZUMAB [Suspect]
     Active Substance: VEDOLIZUMAB
  3. VEDOLIZUMAB [Suspect]
     Active Substance: VEDOLIZUMAB
  4. VEDOLIZUMAB [Suspect]
     Active Substance: VEDOLIZUMAB
  5. VEDOLIZUMAB [Suspect]
     Active Substance: VEDOLIZUMAB
  6. VEDOLIZUMAB [Suspect]
     Active Substance: VEDOLIZUMAB
  7. VEDOLIZUMAB [Suspect]
     Active Substance: VEDOLIZUMAB
  8. VEDOLIZUMAB [Suspect]
     Active Substance: VEDOLIZUMAB
  9. Salofalk [Concomitant]
     Dosage: 4 GRAM, QD
     Dates: start: 2023
  10. ALLOPURINOL [Concomitant]
     Active Substance: ALLOPURINOL
  11. FUROSEMIDE [Concomitant]
     Active Substance: FUROSEMIDE
  12. CANDESARTAN [Concomitant]
     Active Substance: CANDESARTAN
  13. SILODOSIN [Concomitant]
     Active Substance: SILODOSIN
  14. APIXABAN [Concomitant]
     Active Substance: APIXABAN
  15. BISOPROLOL [Concomitant]
     Active Substance: BISOPROLOL

REACTIONS (1)
  - Blood pressure increased [Not Recovered/Not Resolved]
